FAERS Safety Report 6707669-7 (Version None)
Quarter: 2010Q2

REPORT INFORMATION
  Report Type: 
  Country: None (occurrence: None)
  Receive Date: 20100429
  Receipt Date: 20100419
  Transmission Date: 20101027
  Serious: Yes (Congenital Anomaly, Other)
  Sender: FDA-Public Use
  Company Number: 1000013413

PATIENT

DRUGS (5)
  1. ESCITALOPRAM OXALATE [Suspect]
     Dosage: TRANSPLACENTAL
     Route: 064
  2. QUETIAPINE [Concomitant]
  3. ANTIBIOTICS (NOS) [Concomitant]
  4. PAINKILLERS (NOS) [Concomitant]
  5. ANTACIDS (NOS) [Concomitant]

REACTIONS (3)
  - CONGENITAL NEUROLOGICAL DISORDER [None]
  - MATERNAL DRUGS AFFECTING FOETUS [None]
  - TALIPES [None]
